FAERS Safety Report 5278575-2 (Version None)
Quarter: 2007Q1

REPORT INFORMATION
  Report Type: 
  Country: None (occurrence: None)
  Receive Date: 20070328
  Receipt Date: 20070322
  Transmission Date: 20070707
  Serious: Yes (Other)
  Sender: FDA-Public Use
  Company Number: US-GLAXOSMITHKLINE-A0613758A

PATIENT
  Age: 30 Year
  Sex: Female

DRUGS (4)
  1. WELLBUTRIN [Suspect]
     Indication: BIPOLAR I DISORDER
     Dosage: 300MG PER DAY
     Route: 048
     Dates: end: 20060801
  2. LAMICTAL [Suspect]
     Indication: CONVULSION
     Route: 048
     Dates: start: 20060725
  3. PRENATAL VITAMINS [Concomitant]
  4. LEXAPRO [Concomitant]

REACTIONS (4)
  - DRUG EXPOSURE DURING PREGNANCY [None]
  - MULTIPLE SCLEROSIS [None]
  - PARTIAL SEIZURES [None]
  - PREGNANCY [None]
